FAERS Safety Report 25841577 (Version 1)
Quarter: 2025Q3

REPORT INFORMATION
  Report Type: Spontaneous
  Country: AU (occurrence: AU)
  Receive Date: 20250924
  Receipt Date: 20250924
  Transmission Date: 20251021
  Serious: Yes (Hospitalization)
  Sender: MYLAN
  Company Number: AU-MYLANLABS-2025M1080563

PATIENT
  Age: 39 Year
  Sex: Male

DRUGS (6)
  1. SERTRALINE [Suspect]
     Active Substance: SERTRALINE HYDROCHLORIDE
     Indication: Migraine
  2. SILDENAFIL [Suspect]
     Active Substance: SILDENAFIL
     Indication: Migraine
     Dosage: 25 MILLIGRAM, QD
  3. CHLORPROMAZINE [Suspect]
     Active Substance: CHLORPROMAZINE
     Indication: Migraine
  4. LITHIUM [Concomitant]
     Active Substance: LITHIUM
     Indication: Product used for unknown indication
  5. AMPHETAMINE [Concomitant]
     Active Substance: AMPHETAMINE
     Indication: Migraine
  6. BACLOFEN [Concomitant]
     Active Substance: BACLOFEN
     Indication: Product used for unknown indication

REACTIONS (2)
  - Priapism [Recovered/Resolved]
  - Off label use [Unknown]
